FAERS Safety Report 4705719-0 (Version None)
Quarter: 2005Q3

REPORT INFORMATION
  Report Type: 
  Country: None (occurrence: None)
  Receive Date: 20050701
  Receipt Date: 20050316
  Transmission Date: 20060218
  Serious: Yes (Other)
  Sender: FDA-Public Use
  Company Number: US-MERCK-0503USA02774

PATIENT
  Age: 81 Year
  Sex: Male

DRUGS (4)
  1. INVANZ [Suspect]
     Indication: MULTIPLE-DRUG RESISTANCE
     Route: 042
     Dates: start: 20050101
  2. INVANZ [Suspect]
     Route: 042
     Dates: start: 20050101
  3. INVANZ [Suspect]
     Indication: KLEBSIELLA INFECTION
     Route: 042
     Dates: start: 20050101
  4. INVANZ [Suspect]
     Route: 042
     Dates: start: 20050101

REACTIONS (2)
  - HYPOTENSION [None]
  - SEPSIS [None]
